FAERS Safety Report 21664769 (Version 1)
Quarter: 2022Q4

REPORT INFORMATION
  Report Type: Spontaneous
  Country: FR (occurrence: FR)
  Receive Date: 20221130
  Receipt Date: 20221130
  Transmission Date: 20230113
  Serious: Yes (Other)
  Sender: FDA-Public Use
  Company Number: None

PATIENT
  Age: 29 Year
  Sex: Male

DRUGS (4)
  1. DEXAMETHASONE [Suspect]
     Active Substance: DEXAMETHASONE
     Indication: Analgesic intervention supportive therapy
     Route: 042
     Dates: start: 201710, end: 201710
  2. CLOROTEKAL [Suspect]
     Active Substance: CHLOROPROCAINE HYDROCHLORIDE
     Indication: Spinal anaesthesia
     Route: 024
     Dates: start: 201710, end: 201710
  3. CEFAZOLIN [Suspect]
     Active Substance: CEFAZOLIN
     Indication: Antibiotic prophylaxis
     Route: 042
     Dates: start: 201710, end: 201710
  4. PERFALGAN [Suspect]
     Active Substance: ACETAMINOPHEN
     Indication: Analgesic intervention supportive therapy
     Route: 042
     Dates: start: 201710, end: 201710

REACTIONS (2)
  - Anaphylactic reaction [Recovered/Resolved]
  - Allergy test negative [Recovered/Resolved]

NARRATIVE: CASE EVENT DATE: 20170701
